FAERS Safety Report 16449035 (Version 1)
Quarter: 2019Q2

REPORT INFORMATION
  Report Type: Spontaneous
  Country: MX (occurrence: MX)
  Receive Date: 20190508
  Receipt Date: 20190508
  Transmission Date: 20190711
  Serious: Yes (Hospitalization)
  Sender: FDA-Public Use
  Company Number: None

PATIENT
  Age: 91 Year
  Sex: Female

DRUGS (11)
  1. ASPIRIN. [Concomitant]
     Active Substance: ASPIRIN
  2. VILDAGLIPTIN [Concomitant]
     Active Substance: VILDAGLIPTIN
  3. ALENDRONIC ACID [Concomitant]
     Active Substance: ALENDRONIC ACID
  4. SERTRALINE [Suspect]
     Active Substance: SERTRALINE HYDROCHLORIDE
     Indication: DEPRESSION
     Dosage: ?          QUANTITY:1 TABLET(S);?
     Route: 048
     Dates: start: 20190320, end: 20190320
  5. AMLODIPINE [Concomitant]
     Active Substance: AMLODIPINE BESYLATE
  6. GLUTAMIC ACID [Concomitant]
     Active Substance: GLUTAMIC ACID
  7. LYSINE [Concomitant]
     Active Substance: LYSINE
  8. MULTIVITAMIN WITH INOSITOL [Concomitant]
  9. CALCUM CARBONATE [Concomitant]
  10. VITAMIN B [Concomitant]
     Active Substance: VITAMIN B
  11. FUROSEMIDE. [Concomitant]
     Active Substance: FUROSEMIDE

REACTIONS (10)
  - Euphoric mood [None]
  - Amnesia [None]
  - Hypotension [None]
  - Photopsia [None]
  - Dizziness [None]
  - Vertigo [None]
  - Headache [None]
  - Feeling hot [None]
  - Inappropriate affect [None]
  - Repetitive speech [None]

NARRATIVE: CASE EVENT DATE: 20190320
